FAERS Safety Report 23019779 (Version 1)
Quarter: 2023Q4

REPORT INFORMATION
  Report Type: Spontaneous
  Country: US (occurrence: US)
  Receive Date: 20231003
  Receipt Date: 20231003
  Transmission Date: 20240109
  Serious: Yes (Other)
  Sender: FDA-Public Use
  Company Number: US-SA-SAC20230929000890

PATIENT
  Age: 59 Year
  Sex: Female

DRUGS (1)
  1. DUPIXENT [Suspect]
     Active Substance: DUPILUMAB
     Indication: Asthma
     Dosage: 300 MG, QOW
     Route: 058
     Dates: start: 202302

REACTIONS (3)
  - Clostridium difficile infection [Recovering/Resolving]
  - Diarrhoea [Recovering/Resolving]
  - Ovarian mass [Not Recovered/Not Resolved]

NARRATIVE: CASE EVENT DATE: 20230101
